FAERS Safety Report 4565732-3 (Version None)
Quarter: 2005Q1

REPORT INFORMATION
  Report Type: 
  Country: None (occurrence: None)
  Receive Date: 20050126
  Receipt Date: 20050114
  Transmission Date: 20050727
  Serious: Yes (Hospitalization)
  Sender: FDA-Public Use
  Company Number: 2005-00173

PATIENT
  Age: 72 Year
  Sex: Male

DRUGS (3)
  1. QUINIDINE (WATSON LABORATORIES) (QUINIDINE GLUCONATE) TABLET (EXTENDED [Suspect]
     Indication: ATRIAL FIBRILLATION
     Dosage: 2 TABLET, TID, ORAL
     Route: 048
  2. COUMADIN (BMS) (WARFARIN SODIUM) [Concomitant]
  3. ATENOLOL [Concomitant]

REACTIONS (1)
  - GASTRIC ULCER [None]
